FAERS Safety Report 6121318-0 (Version None)
Quarter: 2009Q1

REPORT INFORMATION
  Report Type: 
  Country: None (occurrence: None)
  Receive Date: 20090313
  Receipt Date: 20090305
  Transmission Date: 20090719
  Serious: Yes (Other)
  Sender: FDA-Public Use
  Company Number: 2009SP002981

PATIENT
  Age: 62 Year
  Sex: Male

DRUGS (7)
  1. TEMODAL [Suspect]
     Indication: ASTROCYTOMA
     Dosage: 140 MG; PO
     Route: 048
     Dates: start: 20090119, end: 20090130
  2. DEXAMETHASONE TAB [Concomitant]
  3. DIFORMIN [Concomitant]
  4. NEUROTOL SLOW [Concomitant]
  5. EMCONCOR [Concomitant]
  6. SOMAC [Concomitant]
  7. DITRIM DUPLO [Concomitant]

REACTIONS (1)
  - PULMONARY EMBOLISM [None]
